FAERS Safety Report 8568365 (Version 2)
Quarter: 2014Q1

REPORT INFORMATION
  Report Type: Report from Study
  Country: ES (occurrence: ES)
  Receive Date: 20120518
  Receipt Date: 20140324
  Transmission Date: 20141002
  Serious: Yes (Hospitalization, Other)
  Sender: FDA-Public Use
  Company Number: ES-JNJFOC-20120508130

PATIENT
  Age: 39 Year
  Sex: Female
  Weight: 45 kg

DRUGS (14)
  1. STELARA [Suspect]
     Indication: PSORIASIS
     Route: 058
     Dates: start: 20120401, end: 201308
  2. NSAID [Concomitant]
     Route: 065
  3. FOLIC ACID [Concomitant]
     Route: 065
  4. PROTON PUMP INHIBITOR [Concomitant]
     Route: 065
  5. ANTICOAGULANTS NOS [Concomitant]
     Route: 065
  6. PARACETAMOL [Concomitant]
     Route: 065
  7. ORAL ANTIDIABETICS [Concomitant]
     Route: 048
  8. ACE INHIBITORS [Concomitant]
     Route: 065
  9. ANGIOTENSIN II ANTAGONISTS [Concomitant]
     Route: 065
  10. BENZODIAZEPINE NOS [Concomitant]
     Route: 065
  11. STATINS NOS [Concomitant]
     Route: 065
  12. ANTIDEPRESSANT NOS [Concomitant]
     Route: 065
  13. ISONIAZID [Concomitant]
     Route: 065
  14. SELECTIVE SEROTONIN REUPTAKE INHIBITOR [Concomitant]
     Route: 065

REACTIONS (1)
  - Escherichia sepsis [Recovered/Resolved]
